FAERS Safety Report 9870008 (Version 1)
Quarter: 2014Q1

REPORT INFORMATION
  Report Type: Spontaneous
  Country: US (occurrence: US)
  Receive Date: 20140205
  Receipt Date: 20140205
  Transmission Date: 20141002
  Serious: No
  Sender: FDA-Public Use
  Company Number: US-GLAXOSMITHKLINE-A1024390A

PATIENT
  Age: 30 Year
  Sex: Female
  Weight: 56.8 kg

DRUGS (3)
  1. VALTREX [Suspect]
     Indication: ANTIVIRAL PROPHYLAXIS
     Dosage: 500MG TWICE PER DAY
     Route: 048
     Dates: start: 20130416
  2. ACYCLOVIR [Concomitant]
     Dosage: 400MG TWICE PER DAY
     Route: 048
     Dates: start: 2009
  3. TRIVORA [Concomitant]

REACTIONS (3)
  - Treatment noncompliance [Unknown]
  - Drug administration error [Unknown]
  - Drug ineffective [Unknown]
